FAERS Safety Report 8073014-0 (Version None)
Quarter: 2012Q1

REPORT INFORMATION
  Report Type: 
  Country: None (occurrence: None)
  Receive Date: 20120126
  Receipt Date: 20120117
  Transmission Date: 20120608
  Serious: Yes (Hospitalization)
  Sender: FDA-Public Use
  Company Number: JP-ASTRAZENECA-2011SE77912

PATIENT
  Age: 47 Year
  Sex: Male
  Weight: 85 kg

DRUGS (12)
  1. RISPERDAL [Concomitant]
     Indication: SCHIZOPHRENIA
     Route: 048
  2. LOXOPROFEN SODIUM HYDRATE [Concomitant]
     Indication: ANTIINFLAMMATORY THERAPY
     Route: 048
  3. LYSOZYME HYDROCHLORIDE [Concomitant]
     Indication: INFLAMMATION
     Route: 048
  4. LENDORMIN [Concomitant]
     Indication: SCHIZOPHRENIA
     Route: 048
  5. ASTOMIN [Concomitant]
     Indication: COUGH
     Route: 048
  6. ALPRAZOLAM [Concomitant]
     Indication: SCHIZOPHRENIA
     Route: 048
  7. DAIO-KANZO-TO [Concomitant]
     Indication: CONSTIPATION PROPHYLAXIS
     Dosage: DOSE UNKNOWN
     Route: 048
     Dates: end: 20111102
  8. CRESTOR [Suspect]
     Route: 048
     Dates: end: 20111102
  9. TASMOLIN [Concomitant]
     Indication: SCHIZOPHRENIA
     Route: 048
  10. CANDESARTAN CILEXETIL [Concomitant]
     Indication: HYPERTENSION
     Route: 048
     Dates: end: 20111111
  11. CLARITHROMYCIN [Concomitant]
     Indication: RESPIRATORY TRACT INFLAMMATION
     Route: 048
     Dates: end: 20111102
  12. FAMOTIDINE [Concomitant]
     Indication: GASTRITIS PROPHYLAXIS
     Route: 048

REACTIONS (1)
  - INTERSTITIAL LUNG DISEASE [None]
